FAERS Safety Report 8990998 (Version 1)
Quarter: 2012Q4

REPORT INFORMATION
  Report Type: Spontaneous
  Country: US (occurrence: None)
  Receive Date: 20121227
  Receipt Date: 20121227
  Transmission Date: 20130627
  Serious: Yes (Other)
  Sender: FDA-Public Use
  Company Number: None

PATIENT
  Age: 40 Year
  Sex: Female
  Weight: 78.02 kg

DRUGS (1)
  1. QUETIAPINE [Suspect]
     Indication: BIPOLAR I DISORDER
     Dates: start: 20121005, end: 20121226

REACTIONS (4)
  - Mania [None]
  - Initial insomnia [None]
  - Product substitution issue [None]
  - Drug effect decreased [None]
